FAERS Safety Report 6150315-4 (Version None)
Quarter: 2009Q2

REPORT INFORMATION
  Report Type: 
  Country: None (occurrence: None)
  Receive Date: 20090407
  Receipt Date: 20090326
  Transmission Date: 20091009
  Serious: Yes (Hospitalization)
  Sender: FDA-Public Use
  Company Number: VAL_00247_2009

PATIENT
  Age: 37 Year
  Sex: Male

DRUGS (5)
  1. CARBAMAZEPINE [Suspect]
     Indication: BIPOLAR DISORDER
     Dosage: (1000 MG)
  2. LITHIUM CARBONATE [Concomitant]
  3. CLONAZEPAM [Concomitant]
  4. OLANZAPINE [Concomitant]
  5. VALPROIC ACID [Concomitant]

REACTIONS (7)
  - ANAEMIA [None]
  - APLASIA PURE RED CELL [None]
  - ASTHENIA [None]
  - BLOOD CHOLESTEROL INCREASED [None]
  - BLOOD IRON INCREASED [None]
  - BLOOD TRIGLYCERIDES INCREASED [None]
  - GAMMA-GLUTAMYLTRANSFERASE INCREASED [None]
